FAERS Safety Report 25009335 (Version 2)
Quarter: 2025Q2

REPORT INFORMATION
  Report Type: Spontaneous
  Country: US (occurrence: US)
  Receive Date: 20250225
  Receipt Date: 20250601
  Transmission Date: 20250716
  Serious: Yes (Death)
  Sender: STEMLINE THERAPEUTICS
  Company Number: US-STEMLINE THERAPEUTICS, INC-2025-STML-US000656

PATIENT

DRUGS (1)
  1. ELZONRIS [Suspect]
     Active Substance: TAGRAXOFUSP-ERZS
     Indication: Blastic plasmacytoid dendritic cell neoplasia
     Route: 042

REACTIONS (1)
  - Sudden cardiac death [Fatal]
